FAERS Safety Report 5569420-6 (Version None)
Quarter: 2007Q4

REPORT INFORMATION
  Report Type: 
  Country: None (occurrence: None)
  Receive Date: 20071220
  Receipt Date: 20071203
  Transmission Date: 20080405
  Serious: Yes (Hospitalization)
  Sender: FDA-Public Use
  Company Number: CH-ASTRAZENECA-2007SE06688

PATIENT
  Age: 67 Year
  Sex: Female
  Weight: 54 kg

DRUGS (1)
  1. BLOPRESS PLUS [Suspect]
     Indication: ESSENTIAL HYPERTENSION
     Dosage: CANDESARTAN CILEXETIL 16 MG/HYDROCHLOROTHIAZIDE 12.5 MG
     Route: 048
     Dates: start: 20050101, end: 20071022

REACTIONS (3)
  - HEPATITIS CHOLESTATIC [None]
  - JAUNDICE [None]
  - RENAL FAILURE ACUTE [None]
